FAERS Safety Report 4536034-6 (Version None)
Quarter: 2005Q1

REPORT INFORMATION
  Report Type: 
  Country: None (occurrence: None)
  Receive Date: 20041216
  Receipt Date: 20040907
  Transmission Date: 20050727
  Serious: Yes (Other)
  Sender: FDA-Public Use
  Company Number: HQWYE965509SEP04

PATIENT
  Age: 16 Year
  Sex: Female
  Weight: 67.19 kg

DRUGS (1)
  1. EFFEXOR XR [Suspect]
     Indication: DEPRESSION
     Dosage: 150 MG 2X PER 1 DAY, ORAL
     Route: 048
     Dates: start: 20031001, end: 20040501

REACTIONS (8)
  - AGITATION [None]
  - ANXIETY [None]
  - IMPULSE-CONTROL DISORDER [None]
  - INSOMNIA [None]
  - NIGHTMARE [None]
  - SUICIDAL IDEATION [None]
  - VITREOUS FLOATERS [None]
  - WEIGHT INCREASED [None]
